FAERS Safety Report 9537464 (Version 2)
Quarter: 2013Q4

REPORT INFORMATION
  Report Type: Spontaneous
  Country: FI (occurrence: FI)
  Receive Date: 20130919
  Receipt Date: 20131007
  Transmission Date: 20140711
  Serious: Yes (Hospitalization)
  Sender: FDA-Public Use
  Company Number: FI-ELI_LILLY_AND_COMPANY-FI201309002271

PATIENT
  Sex: Female

DRUGS (4)
  1. ZYPADHERA [Suspect]
     Indication: PRODUCT USED FOR UNKNOWN INDICATION
     Dosage: 405 MG, UNKNOWN
     Route: 030
     Dates: start: 20130723
  2. ZYPADHERA [Suspect]
     Dosage: 300 MG, UNKNOWN
     Route: 030
     Dates: start: 20130806
  3. ZYPADHERA [Suspect]
     Dosage: 300 MG, 2/W
     Route: 065
  4. SIMVASTATIN [Concomitant]
     Indication: PRODUCT USED FOR UNKNOWN INDICATION
     Dosage: 20 MG, QD
     Route: 065

REACTIONS (1)
  - Injection site infection [Recovering/Resolving]
